FAERS Safety Report 6015072-0 (Version None)
Quarter: 2008Q4

REPORT INFORMATION
  Report Type: 
  Country: None (occurrence: None)
  Receive Date: 20081218
  Receipt Date: 20081203
  Transmission Date: 20090506
  Serious: Yes (Death)
  Sender: FDA-Public Use
  Company Number: KV200800772

PATIENT
  Age: 49 Year
  Sex: Male
  Weight: 76.2 kg

DRUGS (4)
  1. MORPHINE SULFATE [Suspect]
     Indication: PAIN
     Dosage: 2 TABS EVERY 8 HOURS, ORAL
     Route: 048
     Dates: start: 20060401, end: 20080827
  2. MS CONTIN [Concomitant]
  3. MORPHINE [Concomitant]
  4. ACETAMINOPHEN [Concomitant]

REACTIONS (6)
  - ANOREXIA [None]
  - ASTHENIA [None]
  - FALL [None]
  - PNEUMONIA ASPIRATION [None]
  - PRODUCT QUALITY ISSUE [None]
  - SOMNOLENCE [None]
